FAERS Safety Report 15776957 (Version 12)
Quarter: 2020Q1

REPORT INFORMATION
  Report Type: Report from Study
  Country: US (occurrence: US)
  Receive Date: 20181231
  Receipt Date: 20200217
  Transmission Date: 20200409
  Serious: Yes (Hospitalization, Other)
  Sender: FDA-Public Use
  Company Number: US-MALLINCKRODT-T201702770

PATIENT
  Sex: Female

DRUGS (10)
  1. REPOSITORY CORTICOTROPIN INJECTION [Suspect]
     Active Substance: CORTICOTROPIN
     Dosage: 40 UNITS/0.5 ML, 1 TIME WEEKLY (MONDAY)
     Route: 058
     Dates: start: 20150413
  2. PERCOCET [Suspect]
     Active Substance: ACETAMINOPHEN\OXYCODONE HYDROCHLORIDE
     Indication: PAIN
     Dosage: UNK
     Route: 065
  3. PROLIA [Concomitant]
     Active Substance: DENOSUMAB
     Indication: OSTEOPENIA
  4. REPOSITORY CORTICOTROPIN INJECTION [Suspect]
     Active Substance: CORTICOTROPIN
     Dosage: 40 UNITS/0.5 ML, 1 TIME WEEKLY (MONDAY)
     Route: 058
  5. BREO ELLIPTA [Concomitant]
     Active Substance: FLUTICASONE FUROATE\VILANTEROL TRIFENATATE
     Indication: PRODUCT USED FOR UNKNOWN INDICATION
     Dosage: UNK
     Route: 065
  6. REPOSITORY CORTICOTROPIN INJECTION [Suspect]
     Active Substance: CORTICOTROPIN
     Indication: RHEUMATOID ARTHRITIS
     Dosage: 40 UNITS/0.5 ML, WEEKLY
     Route: 058
     Dates: start: 20150409, end: 201504
  7. FORTEO [Concomitant]
     Active Substance: TERIPARATIDE
     Indication: PRODUCT USED FOR UNKNOWN INDICATION
     Dosage: UNK
     Route: 065
  8. REPOSITORY CORTICOTROPIN INJECTION [Suspect]
     Active Substance: CORTICOTROPIN
     Dosage: 40 UNITS / 0.5 ML, 1 TIME WEEKLY (THURSDAY)
     Route: 058
  9. PROLIA [Concomitant]
     Active Substance: DENOSUMAB
     Indication: OSTEOPOROSIS
     Dosage: UNK
     Route: 065
  10. REPOSITORY CORTICOTROPIN INJECTION [Suspect]
     Active Substance: CORTICOTROPIN
     Dosage: 40 UNITS/0.5 ML, 1 TIME WEEKLY (THURSDAY)
     Route: 058
     Dates: start: 20150413

REACTIONS (35)
  - Contusion [Not Recovered/Not Resolved]
  - Musculoskeletal discomfort [Not Recovered/Not Resolved]
  - Knee operation [Unknown]
  - Constipation [Unknown]
  - Haemorrhage [Unknown]
  - Alopecia [Not Recovered/Not Resolved]
  - Skin atrophy [Unknown]
  - Balance disorder [Unknown]
  - Fall [Not Recovered/Not Resolved]
  - Cystitis viral [Unknown]
  - Platelet count decreased [Unknown]
  - Weight decreased [Unknown]
  - Silent myocardial infarction [Unknown]
  - Heart rate irregular [Unknown]
  - Memory impairment [Unknown]
  - Vascular insufficiency [Unknown]
  - Arthropathy [Not Recovered/Not Resolved]
  - Gait disturbance [Not Recovered/Not Resolved]
  - Dehydration [Unknown]
  - Peripheral coldness [Not Recovered/Not Resolved]
  - Osteopenia [Unknown]
  - Depression [Unknown]
  - Pain [Unknown]
  - Incision site haemorrhage [Unknown]
  - Visual impairment [Not Recovered/Not Resolved]
  - Discomfort [Unknown]
  - Arthralgia [Unknown]
  - Nasopharyngitis [Not Recovered/Not Resolved]
  - Wound infection [Recovering/Resolving]
  - Joint injury [Unknown]
  - Cataract [Unknown]
  - Malaise [Not Recovered/Not Resolved]
  - Joint lock [Unknown]
  - Walking aid user [Unknown]
  - Laziness [Unknown]
